FAERS Safety Report 5079440-6 (Version None)
Quarter: 2006Q3

REPORT INFORMATION
  Report Type: 
  Country: None (occurrence: None)
  Receive Date: 20060814
  Receipt Date: 20060515
  Transmission Date: 20061208
  Serious: Yes (Other)
  Sender: FDA-Public Use
  Company Number: PHFR2006GB01722

PATIENT
  Age: 75 Year
  Sex: Male

DRUGS (14)
  1. NEORAL [Suspect]
     Indication: PYODERMA GANGRENOSUM
     Dosage: 150MG
     Route: 048
     Dates: start: 20050601, end: 20050612
  2. NEORAL [Suspect]
     Dosage: 100 MG, QD
     Route: 065
  3. NEORAL [Suspect]
     Dosage: 150 MG, QD
     Route: 065
  4. ACETAMINOPHEN W/ CODEINE [Concomitant]
     Indication: PAIN IN EXTREMITY
     Route: 065
  5. ACETAMINOPHEN [Concomitant]
     Indication: PAIN IN EXTREMITY
     Dosage: 1 G, QD
     Route: 048
  6. ORAMORPH SR [Concomitant]
     Indication: PAIN IN EXTREMITY
     Route: 065
  7. PENTASA [Concomitant]
     Dosage: 500 MG, 8QD
     Route: 065
  8. AMITRIPTYLINE HCL [Concomitant]
     Dosage: 5 / DAY
     Route: 065
  9. ATENOLOL [Concomitant]
     Dosage: 25 MG, QD
     Route: 065
  10. LOSARTAN POSTASSIUM [Concomitant]
     Indication: HYPERTENSION
     Dosage: 25 MG, QD
     Route: 048
  11. GRAPEFRUIT JUICE [Concomitant]
     Route: 048
  12. MINOCYCLINE HCL [Concomitant]
     Indication: CELLULITIS
     Dosage: 200 MG, QD
     Route: 048
  13. MESALAZINE [Concomitant]
     Indication: CROHN'S DISEASE
     Dosage: 1 G, QD
     Route: 048
  14. FERROUS GLUCONATE [Concomitant]
     Indication: ANAEMIA
     Dosage: 300 MG
     Route: 048

REACTIONS (5)
  - EPISTAXIS [None]
  - FOOD INTERACTION [None]
  - GASTRIC HAEMORRHAGE [None]
  - HEADACHE [None]
  - HYPERTENSION [None]
